FAERS Safety Report 6463535-6 (Version None)
Quarter: 2009Q4

REPORT INFORMATION
  Report Type: 
  Country: None (occurrence: None)
  Receive Date: 20091201
  Receipt Date: 20091125
  Transmission Date: 20100525
  Serious: Yes (Hospitalization, Other)
  Sender: FDA-Public Use
  Company Number: US-RB-025794-09

PATIENT
  Age: 53 Year
  Sex: Male

DRUGS (3)
  1. SUBOXONE [Suspect]
     Dosage: UNKNOWN  EXACT DOSING DETAILS
     Route: 060
     Dates: start: 20080101, end: 20091117
  2. SUBOXONE [Suspect]
     Dosage: TOOK 20,  8 MG TABLETS, ON 18-NOV-2009
     Route: 060
     Dates: start: 20091118, end: 20091118
  3. VALIUM [Concomitant]
     Indication: DRUG USE FOR UNKNOWN INDICATION
     Dosage: DOSING INFORMATION UNKNOWN
     Route: 065

REACTIONS (3)
  - OVERDOSE [None]
  - PANIC ATTACK [None]
  - SUICIDAL IDEATION [None]
